FAERS Safety Report 8004902-9 (Version None)
Quarter: 2011Q4

REPORT INFORMATION
  Report Type: 
  Country: None (occurrence: None)
  Receive Date: 20111219
  Receipt Date: 20111207
  Transmission Date: 20120403
  Serious: Yes (Other)
  Sender: FDA-Public Use
  Company Number: 2011SP057691

PATIENT
  Age: 27 Year
  Sex: Male

DRUGS (1)
  1. TEMODAL [Suspect]
     Indication: PHAEOCHROMOCYTOMA
     Dosage: 200 MG/M2;

REACTIONS (4)
  - FATIGUE [None]
  - NEOPLASM PROGRESSION [None]
  - TOXICITY TO VARIOUS AGENTS [None]
  - ILEUS [None]
